FAERS Safety Report 18908238 (Version 19)
Quarter: 2022Q3

REPORT INFORMATION
  Report Type: Spontaneous
  Country: CA (occurrence: CA)
  Receive Date: 20210218
  Receipt Date: 20220923
  Transmission Date: 20221027
  Serious: Yes (Other)
  Sender: FDA-Public Use
  Company Number: CA-CELLTRION INC.-2020CA034947

PATIENT

DRUGS (19)
  1. INFLECTRA [Suspect]
     Active Substance: INFLIXIMAB-DYYB
     Indication: Colitis ulcerative
     Dosage: 400 MG, 0, 2, 6, THEN EVERY 8 WEEKS
     Route: 042
     Dates: start: 20201106, end: 20210208
  2. INFLECTRA [Suspect]
     Active Substance: INFLIXIMAB-DYYB
     Dosage: 400 MG, 0, 2, 6, THEN EVERY 8 WEEKS
     Route: 042
     Dates: start: 20201217
  3. INFLECTRA [Suspect]
     Active Substance: INFLIXIMAB-DYYB
     Dosage: 400 MG, 0, 2, 6, THEN EVERY 8 WEEKS
     Route: 042
     Dates: start: 20210208
  4. INFLECTRA [Suspect]
     Active Substance: INFLIXIMAB-DYYB
     Dosage: 400 MG, 0, 2, 6, THE EVERY 8 WEEKS
     Route: 042
     Dates: start: 20210308
  5. INFLECTRA [Suspect]
     Active Substance: INFLIXIMAB-DYYB
     Dosage: 700 MG, NEXT DOSE +/-08MAR2021, THEN EVERY 6 WEEKS
     Route: 042
     Dates: start: 20210308
  6. INFLECTRA [Suspect]
     Active Substance: INFLIXIMAB-DYYB
     Dosage: 700 MG, NEXT DOSE +/-08MAR2021, THEN EVERY 6 WEEKS
     Route: 041
     Dates: start: 20210308
  7. INFLECTRA [Suspect]
     Active Substance: INFLIXIMAB-DYYB
     Dosage: 700 MG, EVERY 6 WEEKS
     Route: 042
     Dates: start: 20210419
  8. INFLECTRA [Suspect]
     Active Substance: INFLIXIMAB-DYYB
     Dosage: 700 MG, EVERY 6 WEEKS
     Route: 042
     Dates: start: 20210531
  9. INFLECTRA [Suspect]
     Active Substance: INFLIXIMAB-DYYB
     Dosage: 700 MG, EVERY 6 WEEKS
     Route: 042
     Dates: start: 20210716
  10. INFLECTRA [Suspect]
     Active Substance: INFLIXIMAB-DYYB
     Dosage: 700 MG, EVERY 6 WEEKS
     Route: 042
     Dates: start: 20211005
  11. INFLECTRA [Suspect]
     Active Substance: INFLIXIMAB-DYYB
     Dosage: 700 MG, EVERY 6 WEEKS
     Route: 042
     Dates: start: 20211116
  12. INFLECTRA [Suspect]
     Active Substance: INFLIXIMAB-DYYB
     Dosage: 700 MG, EVERY 6 WEEKS
     Route: 042
     Dates: start: 20211229
  13. INFLECTRA [Suspect]
     Active Substance: INFLIXIMAB-DYYB
     Dosage: 700 MG, EVERY 6 WEEKS
     Route: 042
     Dates: start: 20220207
  14. INFLECTRA [Suspect]
     Active Substance: INFLIXIMAB-DYYB
     Dosage: 700 MG, EVERY 6 WEEKS
     Route: 042
     Dates: start: 20220325
  15. INFLECTRA [Suspect]
     Active Substance: INFLIXIMAB-DYYB
     Dosage: 700 MG, EVERY 6 WEEKS
     Route: 042
     Dates: start: 20220621
  16. INFLECTRA [Suspect]
     Active Substance: INFLIXIMAB-DYYB
     Dosage: 700 MG, EVERY 6 WEEKS
     Route: 042
     Dates: start: 20220728
  17. INFLECTRA [Suspect]
     Active Substance: INFLIXIMAB-DYYB
     Dosage: 700 MG, EVERY 6 WEEKS
     Route: 041
     Dates: start: 20220908
  18. MESALAMINE [Concomitant]
     Active Substance: MESALAMINE
     Dosage: 1 DF, DOSAGE IS UNKNOWN
     Route: 065
  19. SYNTHROID [Concomitant]
     Active Substance: LEVOTHYROXINE SODIUM
     Dosage: 1 DF
     Route: 065

REACTIONS (17)
  - Diarrhoea haemorrhagic [Not Recovered/Not Resolved]
  - Haematochezia [Unknown]
  - Drug ineffective [Unknown]
  - Off label use [Unknown]
  - Off label use [Unknown]
  - Off label use [Unknown]
  - Intentional product use issue [Unknown]
  - Headache [Unknown]
  - Condition aggravated [Recovered/Resolved]
  - Blood pressure diastolic increased [Unknown]
  - COVID-19 [Recovered/Resolved]
  - Pain [Unknown]
  - Cough [Unknown]
  - Aphonia [Unknown]
  - Pain [Not Recovered/Not Resolved]
  - Arthritis [Not Recovered/Not Resolved]
  - Condition aggravated [Not Recovered/Not Resolved]

NARRATIVE: CASE EVENT DATE: 20210201
